FAERS Safety Report 6240690-4 (Version None)
Quarter: 2009Q2

REPORT INFORMATION
  Report Type: 
  Country: None (occurrence: None)
  Receive Date: 20090623
  Receipt Date: 20090126
  Transmission Date: 20091009
  Serious: No
  Sender: FDA-Public Use
  Company Number: US-ASTRAZENECA-2009UW02302

PATIENT
  Sex: Male

DRUGS (2)
  1. PULMICORT FLEXHALER [Suspect]
     Indication: ASTHMA
     Dosage: 360 MCG, 2 PUFFS  DAILY
     Route: 055
     Dates: start: 20081101
  2. PULMICORT FLEXHALER [Suspect]
     Dosage: 360 MCG, 2 PUFFS  DAILY
     Route: 055

REACTIONS (1)
  - COUGH [None]
